FAERS Safety Report 10583284 (Version 1)
Quarter: 2014Q4

REPORT INFORMATION
  Report Type: Spontaneous
  Country: US (occurrence: US)
  Receive Date: 20141114
  Receipt Date: 20141114
  Transmission Date: 20150529
  Serious: Yes (Hospitalization)
  Sender: FDA-Public Use
  Company Number: US-CIPLA LTD.-2014US01774

PATIENT

DRUGS (3)
  1. ETHANOL [Suspect]
     Active Substance: ALCOHOL
  2. LAMOTRIGINE. [Suspect]
     Active Substance: LAMOTRIGINE
     Dosage: 200 MG
  3. QUETIAPINE [Suspect]
     Active Substance: QUETIAPINE

REACTIONS (4)
  - Seizure [Unknown]
  - Rhabdomyolysis [Unknown]
  - Coma [Unknown]
  - Overdose [Unknown]
